FAERS Safety Report 8878781 (Version 1)
Quarter: 2012Q4

REPORT INFORMATION
  Report Type: 
  Country: BR (occurrence: BR)
  Receive Date: 20121026
  Receipt Date: 20121026
  Transmission Date: 20130627
  Serious: Yes (Hospitalization, Other)
  Sender: FDA-Public Use
  Company Number: PHHY2012BR095399

PATIENT
  Sex: Male

DRUGS (1)
  1. FORASEQ [Suspect]
     Indication: LUNG DISORDER
     Dosage: 2 times per day

REACTIONS (4)
  - Aphasia [Recovering/Resolving]
  - Pneumonia [Recovering/Resolving]
  - Bronchitis chronic [Recovering/Resolving]
  - Aggression [Recovering/Resolving]
